FAERS Safety Report 7393727-3 (Version None)
Quarter: 2011Q2

REPORT INFORMATION
  Report Type: 
  Country: None (occurrence: None)
  Receive Date: 20110405
  Receipt Date: 20110321
  Transmission Date: 20111010
  Serious: Yes (Other)
  Sender: FDA-Public Use
  Company Number: US-ELI_LILLY_AND_COMPANY-US201009007089

PATIENT
  Sex: Female

DRUGS (20)
  1. ASPIRIN [Concomitant]
     Dosage: 81 MG, UNK
  2. ZOFRAN [Concomitant]
     Dosage: 4 MG, UNK
  3. PERCOCET [Concomitant]
  4. TAMOXIFEN CITRATE [Concomitant]
  5. IRON [Concomitant]
     Dosage: 325 MG, UNK
  6. SENOKOT [Concomitant]
     Dosage: 8.6-50 MG TAB
  7. NORCO [Concomitant]
     Dosage: 10/325 MG, 1/2 TO 2 TABLETS EVERY 4 TO 6 HOURS
     Route: 048
  8. AUGMENTIN '125' [Concomitant]
     Dosage: 500/125 MG, UNKNOWN
  9. CALCIUM [Concomitant]
     Dosage: 500 MG, UNK
  10. MICARDIS [Concomitant]
     Dosage: 40 MG, UNK
  11. TYLENOL (CAPLET) [Concomitant]
     Dosage: 325 MG, UNK
  12. LASIX [Concomitant]
     Dosage: 20 MG, UNK
  13. VITAMIN D [Concomitant]
     Dosage: 1000 U, UNK
  14. FISH OIL [Concomitant]
     Dosage: 1 TABLET, DAILY (1/D)
  15. FORTEO [Suspect]
     Indication: OSTEOPOROSIS
     Dosage: 20 UG, DAILY (1/D)
     Route: 058
     Dates: start: 20100716, end: 20100921
  16. OSTEO BI-FLEX [Concomitant]
     Dosage: 2 TABLETS (8.6 MG-50 MG), DAILY (1/D)
  17. AUGMENTIN '125' [Concomitant]
     Dosage: 875 MG-125 MG, UNK
  18. LACTASE [Concomitant]
  19. FUROSEMIDE [Concomitant]
  20. ICAPS [Concomitant]
     Dosage: 1 TABLET, DAILY (1/D)

REACTIONS (5)
  - METASTASES TO LUNG [None]
  - CELLULITIS [None]
  - MALIGNANT FIBROUS HISTIOCYTOMA [None]
  - HAEMORRHAGE [None]
  - RADIATION SKIN INJURY [None]
